FAERS Safety Report 24584609 (Version 2)
Quarter: 2024Q4

REPORT INFORMATION
  Report Type: Spontaneous
  Country: US (occurrence: US)
  Receive Date: 20241106
  Receipt Date: 20241204
  Transmission Date: 20250115
  Serious: No
  Sender: NOVARTIS
  Company Number: US-002147023-NVSC2024US213486

PATIENT
  Sex: Male
  Weight: 136 kg

DRUGS (1)
  1. SCEMBLIX [Suspect]
     Active Substance: ASCIMINIB HYDROCHLORIDE
     Indication: Chronic myeloid leukaemia
     Dosage: 20 MG, QD
     Route: 048
     Dates: start: 202401

REACTIONS (8)
  - Pain [Unknown]
  - Nausea [Unknown]
  - Visual impairment [Unknown]
  - Musculoskeletal stiffness [Unknown]
  - Body temperature increased [Unknown]
  - Diarrhoea [Unknown]
  - Fatigue [Unknown]
  - Full blood count increased [Unknown]
